FAERS Safety Report 8282665-X (Version None)
Quarter: 2012Q2

REPORT INFORMATION
  Report Type: 
  Country: None (occurrence: None)
  Receive Date: 20120413
  Receipt Date: 20120411
  Transmission Date: 20120825
  Serious: No
  Sender: FDA-Public Use
  Company Number: US-PFIZER INC-2012090711

PATIENT
  Age: 17 Year
  Sex: Male
  Weight: 68.027 kg

DRUGS (2)
  1. SERTRALINE HYDROCHLORIDE [Suspect]
     Dosage: 250 MG, DAILY
     Route: 048
     Dates: start: 20120224
  2. SERTRALINE HYDROCHLORIDE [Suspect]
     Indication: GENERALISED ANXIETY DISORDER
     Dosage: 200 MG, DAILY
     Route: 048
     Dates: start: 20120127, end: 20120223

REACTIONS (4)
  - FATIGUE [None]
  - NAUSEA [None]
  - AGGRESSION [None]
  - DEPRESSED MOOD [None]
